FAERS Safety Report 18485680 (Version 2)
Quarter: 2020Q4

REPORT INFORMATION
  Report Type: Spontaneous
  Country: ES (occurrence: ES)
  Receive Date: 20201110
  Receipt Date: 20201215
  Transmission Date: 20210114
  Serious: Yes (Other)
  Sender: FDA-Public Use
  Company Number: NVSC2020ES297271

PATIENT
  Age: 51 Year
  Sex: Female

DRUGS (5)
  1. MYCOPHENOLATE MOFETIL. [Suspect]
     Active Substance: MYCOPHENOLATE MOFETIL
     Indication: PYELONEPHRITIS CHRONIC
     Dosage: 500 MG, BID
     Route: 065
  2. TACROLIMUS. [Suspect]
     Active Substance: TACROLIMUS
     Indication: PYELONEPHRITIS CHRONIC
     Dosage: UNK
     Route: 065
  3. BASILIXIMAB [Suspect]
     Active Substance: BASILIXIMAB
     Indication: PYELONEPHRITIS CHRONIC
     Dosage: UNK
     Route: 065
  4. PREDNISONE. [Suspect]
     Active Substance: PREDNISONE
     Indication: PYELONEPHRITIS CHRONIC
     Dosage: 5 MG, QD
     Route: 065
  5. CIDOFOVIR. [Concomitant]
     Active Substance: CIDOFOVIR
     Indication: ANTIVIRAL TREATMENT
     Dosage: 40 MG (2 WEEKLY DOSES)
     Route: 065

REACTIONS (7)
  - Interstitial lung disease [Unknown]
  - Polyomavirus-associated nephropathy [Unknown]
  - Diabetes mellitus [Unknown]
  - Renal impairment [Recovered/Resolved]
  - Atrophy [Unknown]
  - Product use in unapproved indication [Unknown]
  - Proteinuria [Unknown]
